FAERS Safety Report 10615350 (Version 1)
Quarter: 2014Q4

REPORT INFORMATION
  Report Type: Spontaneous
  Country: US (occurrence: US)
  Receive Date: 20141201
  Receipt Date: 20141201
  Transmission Date: 20150529
  Serious: No
  Sender: FDA-Public Use
  Company Number: US-PFIZER INC-2014323931

PATIENT
  Sex: Female

DRUGS (8)
  1. SEROQUEL [Interacting]
     Active Substance: QUETIAPINE FUMARATE
     Dosage: UNK
  2. ARAVA [Interacting]
     Active Substance: LEFLUNOMIDE
     Dosage: UNK
  3. SINGULAIR [Interacting]
     Active Substance: MONTELUKAST SODIUM
     Dosage: UNK
  4. LYRICA [Suspect]
     Active Substance: PREGABALIN
     Dosage: UNK
  5. PROPANOLOL HCL [Interacting]
     Active Substance: PROPRANOLOL HYDROCHLORIDE
     Dosage: UNK
  6. XELTIC [Interacting]
     Active Substance: GLYBURIDE
     Dosage: UNK
  7. GENTAC [Interacting]
     Active Substance: GENTAMICIN SULFATE
     Dosage: UNK
  8. BUTERIDOL [Interacting]
     Active Substance: HALOPERIDOL
     Dosage: UNK

REACTIONS (2)
  - Drug ineffective [Unknown]
  - Drug interaction [Unknown]
